FAERS Safety Report 17218779 (Version 1)
Quarter: 2020Q1

REPORT INFORMATION
  Report Type: Spontaneous
  Country: US (occurrence: US)
  Receive Date: 20191230
  Receipt Date: 20191230
  Transmission Date: 20200409
  Serious: Yes (Hospitalization)
  Sender: FDA-Public Use
  Company Number: None

PATIENT
  Age: 18 Year
  Sex: Female

DRUGS (2)
  1. IBUROFEN TAB 200MG [Concomitant]
     Dates: start: 20190610
  2. HUMIRA [Suspect]
     Active Substance: ADALIMUMAB
     Dosage: ?          OTHER FREQUENCY:ONCEEVERY 2 WEEKS;?
     Route: 058

REACTIONS (1)
  - Surgery [None]

NARRATIVE: CASE EVENT DATE: 20191227
